FAERS Safety Report 10169500 (Version 1)
Quarter: 2014Q2

REPORT INFORMATION
  Report Type: Spontaneous
  Country: US (occurrence: US)
  Receive Date: 20140513
  Receipt Date: 20140513
  Transmission Date: 20141212
  Serious: Yes (Hospitalization, Other)
  Sender: FDA-Public Use
  Company Number: PHEH2014US008989

PATIENT
  Age: 56 Year
  Sex: Male

DRUGS (2)
  1. SANDOSTATIN LAR DEPOT [Suspect]
     Dosage: UNK UKN, UNK
  2. ASPIRIN [Concomitant]
     Dosage: UNK UKN, UNK

REACTIONS (6)
  - Appendicitis perforated [Unknown]
  - Abdominal discomfort [Unknown]
  - Angioedema [Unknown]
  - Hypersensitivity [Unknown]
  - Urticaria [Unknown]
  - Rash pustular [Unknown]
